FAERS Safety Report 5836884-X (Version None)
Quarter: 2008Q3

REPORT INFORMATION
  Report Type: 
  Country: None (occurrence: None)
  Receive Date: 20080807
  Receipt Date: 20080709
  Transmission Date: 20090109
  Serious: Yes (Other)
  Sender: FDA-Public Use
  Company Number: PHHO2008IT09493

PATIENT
  Sex: Female

DRUGS (3)
  1. SANDOSTATIN LAR [Suspect]
     Dosage: 40MG/MONTH
     Dates: start: 20080101
  2. SANDOSTATIN LAR [Suspect]
     Dosage: NO TREATMENT
     Dates: start: 20080301
  3. SANDOSTATIN LAR [Suspect]
     Dosage: 20MG/MONTH
     Dates: start: 20080401

REACTIONS (3)
  - ALOPECIA [None]
  - PARAESTHESIA [None]
  - TREMOR [None]
